FAERS Safety Report 6433586-6 (Version None)
Quarter: 2009Q4

REPORT INFORMATION
  Report Type: 
  Country: None (occurrence: None)
  Receive Date: 20091106
  Receipt Date: 20091106
  Transmission Date: 20100525
  Serious: No
  Sender: FDA-Public Use
  Company Number: None

PATIENT
  Age: 74 Year
  Sex: Female
  Weight: 83.9154 kg

DRUGS (2)
  1. ACIPHEX [Suspect]
     Indication: DYSPEPSIA
     Dosage: 1 PILL DAILY ORAL
     Route: 048
     Dates: start: 20090123, end: 20090221
  2. ACIPHEX [Suspect]
     Indication: GASTROOESOPHAGEAL REFLUX DISEASE
     Dosage: 1 PILL DAILY ORAL
     Route: 048
     Dates: start: 20090123, end: 20090221

REACTIONS (1)
  - DIARRHOEA [None]
